FAERS Safety Report 5247885-7 (Version None)
Quarter: 2007Q1

REPORT INFORMATION
  Report Type: 
  Country: None (occurrence: None)
  Receive Date: 20070223
  Receipt Date: 20070209
  Transmission Date: 20070707
  Serious: Yes (Other)
  Sender: FDA-Public Use
  Company Number: PHEH2007US01898

PATIENT
  Age: 68 Year
  Sex: Female

DRUGS (1)
  1. ZOMETA [Suspect]

REACTIONS (11)
  - BONE DISORDER [None]
  - DENTAL CARIES [None]
  - GINGIVAL INFECTION [None]
  - INFLAMMATION [None]
  - OEDEMA MOUTH [None]
  - ORAL SOFT TISSUE DISORDER [None]
  - OSTEOMYELITIS [None]
  - OSTEONECROSIS [None]
  - PAIN [None]
  - SOFT TISSUE INFECTION [None]
  - TOOTH EXTRACTION [None]
